FAERS Safety Report 5403315-3 (Version None)
Quarter: 2007Q3

REPORT INFORMATION
  Report Type: 
  Country: None (occurrence: None)
  Receive Date: 20070801
  Receipt Date: 20070725
  Transmission Date: 20080115
  Serious: Yes (Hospitalization, Other)
  Sender: FDA-Public Use
  Company Number: US-ABBOTT-07P-163-0371993-00

PATIENT
  Sex: Female

DRUGS (5)
  1. HUMIRA [Suspect]
     Indication: RHEUMATOID ARTHRITIS
     Route: 058
     Dates: start: 20050101, end: 20060501
  2. HUMIRA [Suspect]
     Route: 058
     Dates: start: 20060801, end: 20070307
  3. HUMIRA [Suspect]
     Route: 058
     Dates: start: 20070417
  4. HYDROXYCHLOROQUINE PHOSPHATE [Concomitant]
     Indication: IMMUNODEFICIENCY
     Dates: start: 20050101
  5. UNKNOWN MEDICATION [Concomitant]
     Indication: HYPERTENSION

REACTIONS (5)
  - CARPAL TUNNEL SYNDROME [None]
  - GINGIVAL DISORDER [None]
  - SWELLING FACE [None]
  - TOOTH ABSCESS [None]
  - TRIGGER FINGER [None]
